FAERS Safety Report 23158013 (Version 1)
Quarter: 2023Q4

REPORT INFORMATION
  Report Type: Spontaneous
  Country: IT (occurrence: IT)
  Receive Date: 20231108
  Receipt Date: 20231108
  Transmission Date: 20240110
  Serious: Yes (Death, Other)
  Sender: FDA-Public Use
  Company Number: IT-AMGEN-ITASP2023194960

PATIENT

DRUGS (2)
  1. BEVACIZUMAB [Suspect]
     Active Substance: BEVACIZUMAB
     Indication: Meningioma
     Dosage: UNK (5 OR 10 MG/KG Q2W OR 7.5 MG/KG Q3W), Q2WK
     Route: 065
  2. BEVACIZUMAB [Suspect]
     Active Substance: BEVACIZUMAB
     Dosage: UNK (5 OR 10 MG/KG Q2W OR 7.5 MG/KG Q3W), Q3WK
     Route: 065

REACTIONS (4)
  - Death [Fatal]
  - Meningioma [Unknown]
  - Drug effective for unapproved indication [Unknown]
  - Off label use [Unknown]
